FAERS Safety Report 17264256 (Version 1)
Quarter: 2019Q4

REPORT INFORMATION
  Report Type: Spontaneous
  Country: US (occurrence: US)
  Receive Date: 20191219
  Receipt Date: 20191219
  Transmission Date: 20200122
  Serious: Yes (Life-Threatening)
  Sender: FDA-Public Use
  Company Number: None

PATIENT
  Sex: Female

DRUGS (8)
  1. DUOBRII LOT [Concomitant]
  2. VIT D [Concomitant]
     Active Substance: VITAMIN D NOS
  3. BOPTOM [Concomitant]
  4. TACROLIMUS OIN [Concomitant]
  5. CLOBETASOL LOT [Concomitant]
  6. IMIQUIMOD CRE [Concomitant]
  7. HUMIRA [Suspect]
     Active Substance: ADALIMUMAB
     Indication: RHEUMATOID ARTHRITIS
     Route: 058
     Dates: start: 20180208
  8. MULTI VIT [Concomitant]
     Active Substance: VITAMINS

REACTIONS (3)
  - Localised infection [None]
  - Basal cell carcinoma [None]
  - Product dose omission [None]
